FAERS Safety Report 5034457-2 (Version None)
Quarter: 2006Q2

REPORT INFORMATION
  Report Type: 
  Country: None (occurrence: None)
  Receive Date: 20060620
  Receipt Date: 20060607
  Transmission Date: 20061013
  Serious: Yes (Other)
  Sender: FDA-Public Use
  Company Number: 2006058476

PATIENT
  Age: 39 Year
  Sex: Male

DRUGS (5)
  1. SILDENAFIL CITRATE [Suspect]
     Indication: PULMONARY HYPERTENSION
     Dosage: ORAL
     Route: 048
  2. ALL OTHER THERAPEUTIC PRODUCTS [Concomitant]
  3. COUMADIN [Concomitant]
  4. MODULON (TRIMEBUTINE MALEATE) [Concomitant]
  5. TRACLEER [Concomitant]

REACTIONS (3)
  - BLINDNESS TRANSIENT [None]
  - OPTIC NERVE DISORDER [None]
  - RETINAL VASCULAR DISORDER [None]
